FAERS Safety Report 13117487 (Version 1)
Quarter: 2017Q1

REPORT INFORMATION
  Report Type: Report from Study
  Country: None (occurrence: DO)
  Receive Date: 20170116
  Receipt Date: 20170116
  Transmission Date: 20170428
  Serious: Yes (Hospitalization)
  Sender: FDA-Public Use
  Company Number: DO-ABBVIE-17K-279-1831884-00

PATIENT
  Age: 48 Year
  Sex: Female

DRUGS (7)
  1. HUMIRA [Suspect]
     Active Substance: ADALIMUMAB
     Route: 058
  2. OMEPRAZOLE. [Concomitant]
     Active Substance: OMEPRAZOLE
     Indication: PRODUCT USED FOR UNKNOWN INDICATION
     Route: 048
     Dates: start: 20170101
  3. AZORAN [Concomitant]
     Indication: PRODUCT USED FOR UNKNOWN INDICATION
     Route: 048
     Dates: start: 20161130
  4. MUSILAN NATURAL [Concomitant]
     Indication: PRODUCT USED FOR UNKNOWN INDICATION
     Route: 048
     Dates: start: 20170101
  5. KETOMAX - 10 [Concomitant]
     Indication: PRODUCT USED FOR UNKNOWN INDICATION
     Route: 048
     Dates: start: 20170101
  6. HUMIRA [Suspect]
     Active Substance: ADALIMUMAB
     Indication: COLITIS ULCERATIVE
     Route: 058
     Dates: start: 20150319
  7. AMCHAFIBRIN [Concomitant]
     Active Substance: TRANEXAMIC ACID
     Indication: PRODUCT USED FOR UNKNOWN INDICATION
     Route: 048
     Dates: start: 20170101

REACTIONS (16)
  - Colitis ulcerative [Recovered/Resolved]
  - Rectal haemorrhage [Unknown]
  - Haemorrhoids [Recovered/Resolved]
  - Gastrointestinal disorder [Recovered/Resolved]
  - Neutrophil count decreased [Unknown]
  - Differential white blood cell count abnormal [Unknown]
  - Large intestine polyp [Recovered/Resolved]
  - Diarrhoea [Unknown]
  - Rectal polyp [Recovered/Resolved]
  - Dyschezia [Recovered/Resolved]
  - Electrophoresis protein abnormal [Unknown]
  - Lymphocyte count increased [Unknown]
  - Red blood cell sedimentation rate increased [Unknown]
  - Rectal neoplasm [Recovered/Resolved]
  - Pseudopolyposis [Recovered/Resolved]
  - Blood creatinine decreased [Unknown]

NARRATIVE: CASE EVENT DATE: 20160725
